FAERS Safety Report 9440998 (Version 2)
Quarter: 2013Q3

REPORT INFORMATION
  Report Type: Report from Study
  Country: JP (occurrence: JP)
  Receive Date: 20130805
  Receipt Date: 20130819
  Transmission Date: 20140515
  Serious: Yes (Death, Life-Threatening, Hospitalization)
  Sender: FDA-Public Use
  Company Number: JP-UCBSA-093365

PATIENT
  Age: 76 Year
  Sex: Male
  Weight: 47.9 kg

DRUGS (13)
  1. SODIUM CHLORIDE [Concomitant]
     Dosage: 6 G
     Route: 048
     Dates: end: 20130528
  2. LEPRINTON [Concomitant]
     Dosage: 300 MG
     Route: 048
     Dates: end: 20130528
  3. TAMSULOSIN HYDROCHLORIDE [Concomitant]
     Dosage: 0.2 MG
     Dates: start: 20130402, end: 20130528
  4. BESACOLIN [Concomitant]
     Dosage: 0.6 MG
     Route: 048
     Dates: start: 20130402, end: 20130528
  5. LANDSEN [Concomitant]
     Indication: SIMPLE PARTIAL SEIZURES
     Dosage: 0.25 MG
     Route: 048
     Dates: start: 20130404, end: 20130528
  6. ASRARN [Concomitant]
     Dosage: 5 MG
     Route: 048
     Dates: end: 20130528
  7. E KEPPRA [Suspect]
     Indication: SIMPLE PARTIAL SEIZURES
     Route: 048
     Dates: start: 20130327, end: 20130404
  8. E KEPPRA [Suspect]
     Indication: SIMPLE PARTIAL SEIZURES
     Route: 048
     Dates: start: 20130405, end: 20130528
  9. CLARITHROMYCIN [Concomitant]
     Dosage: 200 MG
     Route: 048
     Dates: end: 20130528
  10. BOIDAN [Concomitant]
     Dosage: 200 MG
     Dates: end: 20130528
  11. LIMARMONE [Concomitant]
     Route: 048
     Dates: end: 20130528
  12. FOLIAMIN [Concomitant]
     Dosage: 15 MG
     Route: 048
     Dates: end: 20130528
  13. MAGMITT [Concomitant]
     Dosage: 990 MG
     Route: 048
     Dates: end: 20130528

REACTIONS (3)
  - Death [Fatal]
  - Pneumonia [Unknown]
  - Cardiac failure acute [Unknown]
